FAERS Safety Report 8543857-5 (Version None)
Quarter: 2012Q3

REPORT INFORMATION
  Report Type: 
  Country: None (occurrence: None)
  Receive Date: 20120727
  Receipt Date: 20120724
  Transmission Date: 20120928
  Serious: Yes (Other)
  Sender: FDA-Public Use
  Company Number: PHHY2012CO045984

PATIENT
  Sex: Female

DRUGS (3)
  1. CALCIUM [Concomitant]
  2. ZOLEDRONOC ACID [Suspect]
     Indication: OSTEOPOROSIS
     Dosage: 5 MG/100 ML, YEARLY
     Route: 042
     Dates: start: 20120311
  3. ANTIBIOTICS [Concomitant]

REACTIONS (8)
  - ORAL DISORDER [None]
  - HEADACHE [None]
  - INFECTION [None]
  - HYPOTENSION [None]
  - PERFORATED ULCER [None]
  - FEELING COLD [None]
  - ARTHRALGIA [None]
  - MALAISE [None]
